FAERS Safety Report 24591386 (Version 1)
Quarter: 2024Q4

REPORT INFORMATION
  Report Type: Report from Study
  Country: US (occurrence: US)
  Receive Date: 20241108
  Receipt Date: 20241108
  Transmission Date: 20250115
  Serious: Yes (Other)
  Sender: ABBVIE
  Company Number: US-ABBVIE-5988874

PATIENT
  Age: 93 Year
  Sex: Male

DRUGS (1)
  1. VENCLEXTA [Suspect]
     Active Substance: VENETOCLAX
     Indication: Myelodysplastic syndrome
     Route: 048
     Dates: start: 202410

REACTIONS (5)
  - Dialysis [Unknown]
  - Platelet count decreased [Unknown]
  - Blood test abnormal [Unknown]
  - Escherichia infection [Unknown]
  - Asthenia [Unknown]

NARRATIVE: CASE EVENT DATE: 20241001
